FAERS Safety Report 9263993 (Version 2)
Quarter: 2013Q2

REPORT INFORMATION
  Report Type: Spontaneous
  Country: CZ (occurrence: CZ)
  Receive Date: 20130430
  Receipt Date: 20130531
  Transmission Date: 20140414
  Serious: Yes (Hospitalization, Other)
  Sender: FDA-Public Use
  Company Number: CZ-GLAXOSMITHKLINE-B0888311A

PATIENT
  Age: 43 Year
  Sex: Male

DRUGS (5)
  1. TROBALT [Suspect]
     Indication: FRONTAL LOBE EPILEPSY
     Dosage: 600MG PER DAY
     Route: 065
     Dates: start: 20130311, end: 20130422
  2. KEPPRA [Concomitant]
     Dosage: 3000MG PER DAY
  3. ZEBINIX [Concomitant]
     Dosage: 1200MG PER DAY
  4. LAMICTAL [Concomitant]
     Dosage: 500MG PER DAY
  5. DIAZEPAM [Concomitant]
     Dosage: 10MG PER DAY

REACTIONS (1)
  - Suicide attempt [Unknown]
